FAERS Safety Report 5960976-8 (Version None)
Quarter: 2008Q4

REPORT INFORMATION
  Report Type: 
  Country: None (occurrence: None)
  Receive Date: 20081121
  Receipt Date: 20081111
  Transmission Date: 20090506
  Serious: Yes (Other)
  Sender: FDA-Public Use
  Company Number: JP-BRISTOL-MYERS SQUIBB COMPANY-14411839

PATIENT
  Age: 56 Year
  Sex: Male
  Weight: 80 kg

DRUGS (4)
  1. ABILIFY [Suspect]
     Indication: SCHIZOPHRENIA
     Route: 048
     Dates: start: 20071219
  2. LITHIUM CARBONATE [Concomitant]
     Dosage: DOSAGE FORM- TABLETS
     Dates: start: 20070417
  3. DEPAKENE [Concomitant]
     Dosage: DOSAGE FORM- SLOW RELEASE TABLET
     Dates: start: 20070417
  4. BENZALIN [Concomitant]
     Dates: start: 20071228, end: 20080415

REACTIONS (2)
  - DELUSION [None]
  - HALLUCINATION [None]
